FAERS Safety Report 9911429 (Version 1)
Quarter: 2014Q1

REPORT INFORMATION
  Report Type: Report from Study
  Country: BR (occurrence: BR)
  Receive Date: 20140219
  Receipt Date: 20140219
  Transmission Date: 20141002
  Serious: Yes (Death)
  Sender: FDA-Public Use
  Company Number: PHHY2014BR020213

PATIENT
  Sex: Male
  Weight: 50 kg

DRUGS (3)
  1. ACLASTA [Suspect]
     Indication: OSTEOPOROSIS
     Dosage: 5 MG, UNK
     Route: 042
     Dates: start: 2013
  2. ACLASTA [Suspect]
     Dosage: 5 MG, UNK
     Route: 042
  3. DIGOXIN [Concomitant]
     Indication: CARDIAC DISORDER
     Dosage: UNK UKN, UNK
     Dates: start: 2013, end: 2013

REACTIONS (1)
  - Pneumonia [Fatal]
